FAERS Safety Report 5458107-6 (Version None)
Quarter: 2007Q3

REPORT INFORMATION
  Report Type: 
  Country: None (occurrence: None)
  Receive Date: 20070918
  Receipt Date: 20070903
  Transmission Date: 20080115
  Serious: Yes (Other)
  Sender: FDA-Public Use
  Company Number: GB-GDP-0715352

PATIENT
  Age: 54 Year
  Sex: Female

DRUGS (4)
  1. METROGEL [Suspect]
     Dosage: 1 APP BID TP
     Route: 061
     Dates: start: 20070704, end: 20070705
  2. CALCIFEROL [Concomitant]
  3. HORMONIN [Concomitant]
  4. MEFENAMIC ACID [Concomitant]

REACTIONS (2)
  - BLISTER [None]
  - ERYTHEMA [None]
